FAERS Safety Report 9335350 (Version 2)
Quarter: 2013Q3

REPORT INFORMATION
  Report Type: Report from Study
  Country: US (occurrence: US)
  Receive Date: 20130606
  Receipt Date: 20130725
  Transmission Date: 20140515
  Serious: Yes (Hospitalization)
  Sender: FDA-Public Use
  Company Number: US-BRISTOL-MYERS SQUIBB COMPANY-18965715

PATIENT
  Age: 62 Year
  Sex: Female
  Weight: 90.8 kg

DRUGS (19)
  1. NIVOLUMAB [Suspect]
     Indication: NON-SMALL CELL LUNG CANCER
     Route: 042
     Dates: start: 20130318, end: 20130424
  2. IPILIMUMAB [Suspect]
     Indication: NON-SMALL CELL LUNG CANCER
     Route: 042
     Dates: start: 20130318, end: 20130424
  3. AZELASTINE [Concomitant]
     Dosage: AZELASTINE 1 OR 2 SPRAYS NOSTRIL-BOTH BID ASTELIN 137MCG/INH
     Route: 045
  4. AZITHROMYCIN [Concomitant]
     Dosage: 1 DF:2 TABS,THEN 1 TAB DAILY FOR 4 DAYS, 250MG ORAL TABS
     Route: 048
  5. BETAMETHASONE [Concomitant]
     Dosage: 1 DF:1 APPLICATION OF BETAMETHASONE BID.1% TOPICAL LOTION
     Route: 061
  6. CEFUROXIME [Concomitant]
     Dosage: 500 MG ORAL TABLET
     Route: 048
  7. FLUCONAZOLE [Concomitant]
     Dosage: FLUCONAZOLE 100 MG TABS
     Route: 048
  8. LISINOPRIL [Concomitant]
     Dosage: LISINOPRIL 20 MG TABS, QHS
     Route: 048
  9. IMODIUM [Concomitant]
     Indication: DIARRHOEA
     Dosage: IMODIUM AD 2MG TABS; 2 TABS THEN 1 TAB MAX 8/DAY
     Route: 048
  10. MS CONTIN [Concomitant]
     Dosage: TABLET, EXTENDED RELEASE
     Route: 048
  11. MULTIVITAMINS + MINERALS [Concomitant]
     Dosage: 1 DF=1TAB
     Route: 048
  12. EFFEXOR XR [Concomitant]
     Dosage: EFFEXOR XR 150 MG CAPS EXT RELEASE
     Route: 048
  13. LOMOTIL [Concomitant]
     Dosage: 1 DF:2.5MG-0.025MG TABLET
     Route: 048
  14. DIPHENOXYLATE + ATROPINE [Concomitant]
     Indication: DIARRHOEA
     Dosage: 1 DF=1-2 TABS Q6 HOURS
     Route: 048
  15. DILAUDID [Concomitant]
     Indication: PAIN
     Dosage: 1 DF=1 OR 2 TABS Q4H DILAUDID  2MG TABS
     Route: 048
  16. LORAZEPAM [Concomitant]
     Indication: NAUSEA
     Dosage: LORAZEPAM 1 MG TABS Q6H
     Route: 048
  17. LORAZEPAM [Concomitant]
     Indication: VOMITING
     Dosage: LORAZEPAM 1 MG TABS Q6H
     Route: 048
  18. ZOFRAN [Concomitant]
     Indication: NAUSEA
     Dosage: ZOFRAN 8MG TABS, Q8HOURS PRN
     Route: 048
  19. ZOFRAN [Concomitant]
     Indication: VOMITING
     Dosage: ZOFRAN 8MG TABS, Q8HOURS PRN
     Route: 048

REACTIONS (1)
  - Pneumonitis [Recovered/Resolved with Sequelae]
